FAERS Safety Report 21433728 (Version 5)
Quarter: 2024Q1

REPORT INFORMATION
  Report Type: Report from Study
  Country: US (occurrence: US)
  Receive Date: 20221010
  Receipt Date: 20240313
  Transmission Date: 20240409
  Serious: Yes (Hospitalization)
  Sender: FDA-Public Use
  Company Number: US-ARGENX-2022-ARGX-US002027

PATIENT

DRUGS (1)
  1. VYVGART [Suspect]
     Active Substance: EFGARTIGIMOD ALFA-FCAB
     Indication: Myasthenia gravis
     Dosage: UNK
     Route: 042
     Dates: start: 20220602, end: 20220623

REACTIONS (8)
  - Postoperative wound infection [Unknown]
  - Fall [Unknown]
  - Patella fracture [Recovering/Resolving]
  - Patella fracture [Recovering/Resolving]
  - Myasthenia gravis crisis [Unknown]
  - Lower limb fracture [Unknown]
  - Therapy cessation [Unknown]
  - Gait inability [Unknown]

NARRATIVE: CASE EVENT DATE: 20220808
